FAERS Safety Report 15708158 (Version 1)
Quarter: 2018Q4

REPORT INFORMATION
  Report Type: Report from Study
  Country: None (occurrence: US)
  Receive Date: 20181211
  Receipt Date: 20181211
  Transmission Date: 20190205
  Serious: Yes (Other)
  Sender: FDA-Public Use
  Company Number: US-ABBVIE-18K-163-2541054-00

PATIENT
  Age: 51 Year
  Sex: Male
  Weight: 108.96 kg

DRUGS (2)
  1. HUMIRA [Suspect]
     Active Substance: ADALIMUMAB
     Route: 058
     Dates: start: 201808
  2. HUMIRA [Suspect]
     Active Substance: ADALIMUMAB
     Indication: PSORIATIC ARTHROPATHY
     Route: 058
     Dates: start: 2015, end: 201806

REACTIONS (2)
  - Psoriasis [Recovered/Resolved]
  - Bile duct obstruction [Recovered/Resolved]

NARRATIVE: CASE EVENT DATE: 2017
